FAERS Safety Report 16047355 (Version 1)
Quarter: 2019Q2

REPORT INFORMATION
  Report Type: Spontaneous
  Country: US (occurrence: US)
  Receive Date: 20190307
  Receipt Date: 20190307
  Transmission Date: 20190711
  Serious: Yes (Other)
  Sender: FDA-Public Use
  Company Number: None

PATIENT
  Age: 68 Year
  Sex: Female
  Weight: 64.8 kg

DRUGS (1)
  1. ATENOLOL. [Suspect]
     Active Substance: ATENOLOL
     Indication: HYPERTENSION
     Route: 048
     Dates: start: 20190120, end: 20190306

REACTIONS (4)
  - Product substitution issue [None]
  - Chest pain [None]
  - Blood pressure systolic increased [None]
  - Manufacturing product shipping issue [None]

NARRATIVE: CASE EVENT DATE: 20190305
